FAERS Safety Report 23354764 (Version 1)
Quarter: 2024Q1

REPORT INFORMATION
  Report Type: Spontaneous
  Country: US (occurrence: US)
  Receive Date: 20240101
  Receipt Date: 20240101
  Transmission Date: 20240409
  Serious: Yes (Death, Other)
  Sender: FDA-Public Use
  Company Number: US-ORGANON-O2312USA002803

PATIENT
  Age: 61 Year
  Sex: Female

DRUGS (7)
  1. REMERON [Suspect]
     Active Substance: MIRTAZAPINE
  2. DONEPEZIL [Suspect]
     Active Substance: DONEPEZIL
     Dosage: UNK
  3. GABAPENTIN [Suspect]
     Active Substance: GABAPENTIN
     Dosage: UNK
  4. LEVETIRACETAM [Suspect]
     Active Substance: LEVETIRACETAM
     Dosage: UNK
  5. TOPIRAMATE [Suspect]
     Active Substance: TOPIRAMATE
     Dosage: UNK
  6. TRAZODONE [Suspect]
     Active Substance: TRAZODONE HYDROCHLORIDE
     Dosage: UNK
  7. MEPROBAMATE [Suspect]
     Active Substance: MEPROBAMATE
     Dosage: UNK

REACTIONS (1)
  - Toxicity to various agents [Fatal]
